FAERS Safety Report 10235382 (Version 1)
Quarter: 2014Q2

REPORT INFORMATION
  Report Type: Spontaneous
  Country: US (occurrence: US)
  Receive Date: 20140613
  Receipt Date: 20140613
  Transmission Date: 20141212
  Serious: No
  Sender: FDA-Public Use
  Company Number: US-PFIZER INC-2014158449

PATIENT
  Sex: Female

DRUGS (1)
  1. DEPO-PROVERA [Suspect]
     Dosage: UNK
     Dates: start: 2008, end: 2013

REACTIONS (5)
  - Mood swings [Unknown]
  - Migraine [Unknown]
  - Stress [Unknown]
  - Photopsia [Unknown]
  - Menorrhagia [Unknown]
